FAERS Safety Report 7456037-1 (Version None)
Quarter: 2011Q2

REPORT INFORMATION
  Report Type: 
  Country: None (occurrence: None)
  Receive Date: 20110503
  Receipt Date: 20110429
  Transmission Date: 20111010
  Serious: No
  Sender: FDA-Public Use
  Company Number: US-PFIZER INC-2011093117

PATIENT
  Sex: Male
  Weight: 65.76 kg

DRUGS (4)
  1. ZOLOFT [Suspect]
     Dosage: 100 MG DAILY
  2. ZOLOFT [Suspect]
     Dosage: 75 MG DAILY
  3. ZOLOFT [Suspect]
     Indication: ANXIETY
     Dosage: 25 MG DAILY
     Route: 048
     Dates: start: 20030101
  4. ZOLOFT [Suspect]
     Dosage: 50 MG DAILY

REACTIONS (1)
  - ALOPECIA [None]
